FAERS Safety Report 5247921-8 (Version None)
Quarter: 2007Q1

REPORT INFORMATION
  Report Type: 
  Country: None (occurrence: None)
  Receive Date: 20070220
  Receipt Date: 20070207
  Transmission Date: 20070707
  Serious: Yes (Hospitalization)
  Sender: FDA-Public Use
  Company Number: CERZ-11484

PATIENT
  Age: 37 Year
  Sex: Female
  Weight: 57.6 kg

DRUGS (1)
  1. CEREZYME [Suspect]
     Indication: GAUCHER'S DISEASE
     Dosage: 55 U/KG Q2WKS IV
     Route: 042
     Dates: start: 19970417

REACTIONS (2)
  - HIP ARTHROPLASTY [None]
  - SURGICAL PROCEDURE REPEATED [None]
